FAERS Safety Report 4954413-X (Version None)
Quarter: 2006Q1

REPORT INFORMATION
  Report Type: 
  Country: None (occurrence: None)
  Receive Date: 20060327
  Receipt Date: 20060301
  Transmission Date: 20060701
  Serious: Yes (Hospitalization)
  Sender: FDA-Public Use
  Company Number: US-ROCHE-438782

PATIENT
  Age: 38 Year
  Sex: Female
  Weight: 64 kg

DRUGS (5)
  1. PEGASYS [Suspect]
     Dosage: STRENGTH REPORTED AS 180 MCG/0.5ML. DOSAGE REGIMEN REPORTED AS EVERY WEEK.
     Route: 058
     Dates: start: 20060118
  2. COPEGUS [Suspect]
     Route: 048
     Dates: start: 20060118
  3. XANAX [Concomitant]
     Indication: ANXIETY
     Route: 048
  4. REMERON [Concomitant]
     Indication: SCHIZOPHRENIA
     Route: 048
  5. SEROQUEL [Concomitant]
     Indication: BIPOLAR DISORDER
     Route: 048

REACTIONS (7)
  - ABDOMINAL PAIN [None]
  - DEHYDRATION [None]
  - FATIGUE [None]
  - LUNG DISORDER [None]
  - NAUSEA [None]
  - ULCER [None]
  - VOMITING [None]
